FAERS Safety Report 4876006-5 (Version None)
Quarter: 2005Q4

REPORT INFORMATION
  Report Type: 
  Country: None (occurrence: None)
  Receive Date: 20051206
  Receipt Date: 20051103
  Transmission Date: 20060501
  Serious: No
  Sender: FDA-Public Use
  Company Number: USA0510112094

PATIENT
  Age: 39 Year
  Sex: Female
  Weight: 43 kg

DRUGS (4)
  1. CYMBALTA [Suspect]
     Indication: DEPRESSION
     Dosage: 20 MG DAY
     Dates: start: 20041101
  2. CYMBALTA [Suspect]
     Indication: DISEASE RECURRENCE
     Dosage: 20 MG DAY
     Dates: start: 20041101
  3. FOSAMAX [Concomitant]
  4. ORTHO TRI-CYCLEN LO [Concomitant]

REACTIONS (5)
  - AKATHISIA [None]
  - BLOOD PRESSURE INCREASED [None]
  - BLOOD SODIUM DECREASED [None]
  - DEPRESSION [None]
  - MUSCLE SPASMS [None]
